FAERS Safety Report 12179790 (Version 3)
Quarter: 2016Q3

REPORT INFORMATION
  Report Type: Spontaneous
  Country: US (occurrence: US)
  Receive Date: 20160219
  Receipt Date: 20160901
  Transmission Date: 20161109
  Serious: No
  Sender: FDA-Public Use
  Company Number: US-RELYPSA-RLY2016000001

PATIENT
  Age: 77 Year
  Sex: Male

DRUGS (17)
  1. WARFARIN SOD [Concomitant]
     Active Substance: WARFARIN SODIUM
     Dosage: 5 MG, QD
  2. ATORVASTATIN [Concomitant]
     Active Substance: ATORVASTATIN
     Dosage: 80 MG, QD
  3. FERROUS SOLFATE [Concomitant]
     Dosage: 325 MG, QD
  4. PHILLIPS STOOL SOFTENER BULK DOCUSATE [Concomitant]
     Active Substance: DOCUSATE SODIUM
     Dosage: UNK, Q.A.M.
  5. KIONEX [Concomitant]
     Active Substance: SODIUM POLYSTYRENE SULFONATE
     Dosage: 15 G, QD
     Dates: end: 20151231
  6. VELTASSA [Suspect]
     Active Substance: PATIROMER
     Indication: HYPERKALAEMIA
     Dosage: 8.4 G, QD
     Route: 048
     Dates: start: 20160101
  7. VITAMINS NOS [Concomitant]
     Active Substance: VITAMINS
     Dosage: 2 TABLETS DAILY (1AM + 1PM)
  8. SODIUM BARCARBONATE [Concomitant]
     Dosage: 650 MG, TID
  9. LEVOTHYROXINE. [Concomitant]
     Active Substance: LEVOTHYROXINE
     Dosage: 1.25 MG, Q.A.M.
  10. FAMOTIDINE. [Concomitant]
     Active Substance: FAMOTIDINE
     Dosage: 20 MG, QD AM
  11. ASPIRIN                            /00002701/ [Concomitant]
     Active Substance: ASPIRIN
     Dosage: 81 MG, QD
  12. VITAMIN C [Concomitant]
     Active Substance: ASCORBIC ACID
     Dosage: 500 MG, BID
  13. WARFARIN SOD [Concomitant]
     Active Substance: WARFARIN SODIUM
     Dosage: 7.5 MG, SINGLE
     Dates: start: 20160103, end: 20160103
  14. VITAMIN D3 [Concomitant]
     Active Substance: CHOLECALCIFEROL
     Dosage: 2000 IU, Q.A.M.
  15. BUMETANIDE. [Concomitant]
     Active Substance: BUMETANIDE
     Dosage: 0.5 MG, Q.A.M.
  16. METOPROLOL TARTRATE. [Concomitant]
     Active Substance: METOPROLOL TARTRATE
     Dosage: 25 MG, QD
  17. GABAPENTIN. [Concomitant]
     Active Substance: GABAPENTIN
     Dosage: 300 MG, BID

REACTIONS (3)
  - Constipation [Recovered/Resolved with Sequelae]
  - Dyspnoea [Recovered/Resolved]
  - Headache [Recovered/Resolved]

NARRATIVE: CASE EVENT DATE: 20160101
